FAERS Safety Report 16775322 (Version 3)
Quarter: 2019Q3

REPORT INFORMATION
  Report Type: Report from Study
  Country: NL (occurrence: NL)
  Receive Date: 20190905
  Receipt Date: 20190929
  Transmission Date: 20191005
  Serious: Yes (Death, Hospitalization)
  Sender: FDA-Public Use
  Company Number: PHHY2019NL203907

PATIENT
  Age: 75 Year
  Sex: Male

DRUGS (2)
  1. SANDOSTATIN LAR DEPOT [Suspect]
     Active Substance: OCTREOTIDE ACETATE
     Indication: NEUROENDOCRINE TUMOUR
     Dosage: 30 MG/ 2 ML, Q4W
     Route: 030
     Dates: start: 20150502
  2. SANDOSTATIN LAR DEPOT [Suspect]
     Active Substance: OCTREOTIDE ACETATE
     Dosage: 30 MG/ 2 ML, Q4W
     Route: 030

REACTIONS (4)
  - Confusional state [Not Recovered/Not Resolved]
  - Neuroendocrine tumour [Fatal]
  - Restlessness [Not Recovered/Not Resolved]
  - Malignant neoplasm progression [Fatal]

NARRATIVE: CASE EVENT DATE: 20190825
